FAERS Safety Report 9524984 (Version 3)
Quarter: 2013Q3

REPORT INFORMATION
  Report Type: Spontaneous
  Country: FR (occurrence: FR)
  Receive Date: 20130916
  Receipt Date: 20130923
  Transmission Date: 20140515
  Serious: Yes (Life-Threatening, Hospitalization, Other)
  Sender: FDA-Public Use
  Company Number: FR-ROCHE-1270408

PATIENT
  Sex: Male

DRUGS (2)
  1. ZELBORAF [Suspect]
     Indication: MALIGNANT MELANOMA
     Dosage: MORNING AND EVENING
     Route: 048
     Dates: start: 20130812, end: 20130831
  2. NERISONE [Concomitant]
     Route: 065

REACTIONS (1)
  - Toxic epidermal necrolysis [Unknown]
